FAERS Safety Report 8513863-5 (Version None)
Quarter: 2012Q3

REPORT INFORMATION
  Report Type: 
  Country: None (occurrence: None)
  Receive Date: 20120717
  Receipt Date: 20120711
  Transmission Date: 20120928
  Serious: Yes (Other)
  Sender: FDA-Public Use
  Company Number: FR-BAYER-2012-023656

PATIENT
  Age: 40 Year
  Sex: Female
  Weight: 57 kg

DRUGS (2)
  1. LEVOTHYROXINE SODIUM [Concomitant]
     Indication: HYPOTHYROIDISM
     Dosage: 112 ?G, UNK
     Route: 048
     Dates: start: 20100901
  2. ESTRADIOL VALERATE/DIENOGEST [Suspect]
     Indication: CONTRACEPTION
     Dosage: UNK
     Dates: start: 20100901, end: 20110712

REACTIONS (3)
  - AMENORRHOEA [None]
  - PREGNANCY ON ORAL CONTRACEPTIVE [None]
  - CAESAREAN SECTION [None]
